FAERS Safety Report 6445226-0 (Version None)
Quarter: 2009Q4

REPORT INFORMATION
  Report Type: 
  Country: None (occurrence: None)
  Receive Date: 20091112
  Receipt Date: 20091106
  Transmission Date: 20100525
  Serious: Yes (Death)
  Sender: FDA-Public Use
  Company Number: 2009013098

PATIENT
  Age: 37 Year
  Sex: Male

DRUGS (2)
  1. NUVIGIL [Suspect]
     Indication: NARCOLEPSY
     Dosage: (150 MG),ORAL
  2. AMANTADINE HCL [Concomitant]

REACTIONS (2)
  - CARDIOMEGALY [None]
  - SUDDEN DEATH [None]
